FAERS Safety Report 4314753-4 (Version None)
Quarter: 2004Q1

REPORT INFORMATION
  Report Type: 
  Country: None (occurrence: None)
  Receive Date: 20040308
  Receipt Date: 20040224
  Transmission Date: 20041129
  Serious: Yes (Other)
  Sender: FDA-Public Use
  Company Number: JP-JNJFOC-20040300519

PATIENT
  Age: 77 Year
  Sex: Female

DRUGS (6)
  1. ITRIZOLE (ITRACONAZOLE) UNSPECIFIED [Suspect]
     Indication: ONYCHOMYCOSIS
     Dosage: 4 CAPS X 1 WEEK
  2. NIFEDIPINE [Concomitant]
  3. CANDESARTAN CILEXETIL (CANDESARTAN CILEXETIL) [Concomitant]
  4. LAFUTIDINE (ALL OTHER THERAPEUTIC PRODUCTS) [Concomitant]
  5. CALCIUM L-ASPARTATE (CALCIUM) [Concomitant]
  6. ALFACALCIDOL (ALFACALCIDOL) [Concomitant]

REACTIONS (3)
  - BRAIN NATRIURETIC PEPTIDE INCREASED [None]
  - CARDIAC FAILURE [None]
  - OEDEMA PERIPHERAL [None]
